FAERS Safety Report 6504533-3 (Version None)
Quarter: 2009Q4

REPORT INFORMATION
  Report Type: 
  Country: None (occurrence: None)
  Receive Date: 20091215
  Receipt Date: 20091204
  Transmission Date: 20100525
  Serious: Yes (Death, Hospitalization)
  Sender: FDA-Public Use
  Company Number: 2009AC000174

PATIENT
  Age: 81 Year
  Sex: Female

DRUGS (15)
  1. DIGOXIN [Suspect]
  2. ASPIRIN [Concomitant]
  3. CARDIZEM [Concomitant]
  4. PEPCID [Concomitant]
  5. VICODIN [Concomitant]
  6. PROVENTIL [Concomitant]
  7. ATROVENT [Concomitant]
  8. COUMADIN [Concomitant]
  9. VALSARTAN [Concomitant]
  10. LASIX [Concomitant]
  11. DIOVAN [Concomitant]
  12. OXYGEN [Concomitant]
  13. ROCALTROL [Concomitant]
  14. TOPROL-XL [Concomitant]
  15. WARFARIN [Concomitant]

REACTIONS (24)
  - ABNORMAL FAECES [None]
  - ACUTE RESPIRATORY FAILURE [None]
  - ANAEMIA [None]
  - ARTERIOSCLEROSIS CORONARY ARTERY [None]
  - ATRIAL FIBRILLATION [None]
  - BENIGN GASTROINTESTINAL NEOPLASM [None]
  - CARDIAC FAILURE CONGESTIVE [None]
  - CARDIOMEGALY [None]
  - CHRONIC OBSTRUCTIVE PULMONARY DISEASE [None]
  - COAGULATION TEST ABNORMAL [None]
  - CONSTIPATION [None]
  - DYSPNOEA [None]
  - ECONOMIC PROBLEM [None]
  - HYPOTENSION [None]
  - MALNUTRITION [None]
  - MULTIPLE INJURIES [None]
  - MYOCARDIAL INFARCTION [None]
  - PAIN [None]
  - PLEURAL EFFUSION [None]
  - PULMONARY OEDEMA [None]
  - RENAL FAILURE ACUTE [None]
  - RENAL FAILURE CHRONIC [None]
  - SURGERY [None]
  - VASCULAR PSEUDOANEURYSM [None]
